FAERS Safety Report 5202536-2 (Version None)
Quarter: 2006Q4

REPORT INFORMATION
  Report Type: 
  Country: None (occurrence: None)
  Receive Date: 20061018
  Receipt Date: 20051114
  Transmission Date: 20070319
  Serious: Yes (Other)
  Sender: FDA-Public Use
  Company Number: 2005078948

PATIENT
  Age: 58 Year
  Sex: Female
  Weight: 54.4316 kg

DRUGS (6)
  1. INSPRA [Suspect]
     Indication: HYPERTENSION
     Dosage: 25 MG (25 MG, 1 IN 24 HR) ORAL
     Route: 048
     Dates: start: 20050101
  2. FOSAMAX [Concomitant]
  3. LIPITOR [Concomitant]
  4. VITAMIN CAP [Concomitant]
  5. ASPIRIN [Concomitant]
  6. BISOPROLOL FUMARATE [Concomitant]

REACTIONS (1)
  - BLOOD POTASSIUM INCREASED [None]
